FAERS Safety Report 23986174 (Version 4)
Quarter: 2025Q3

REPORT INFORMATION
  Report Type: Report from Study
  Country: US (occurrence: US)
  Receive Date: 20240618
  Receipt Date: 20250808
  Transmission Date: 20251020
  Serious: Yes (Hospitalization, Other)
  Sender: SUNOVION
  Company Number: US-MYOVANT SCIENCES GMBH-2024MYSCI0300873

PATIENT
  Age: 76 Year
  Sex: Male

DRUGS (6)
  1. ORGOVYX [Suspect]
     Active Substance: RELUGOLIX
     Dosage: 360 MILLIGRAM, ONE TIME DOSE
     Route: 048
     Dates: start: 20240323, end: 20240323
  2. ORGOVYX [Suspect]
     Active Substance: RELUGOLIX
     Dosage: 120 MILLIGRAM, QD
     Route: 048
     Dates: start: 20240324
  3. ORGOVYX [Suspect]
     Active Substance: RELUGOLIX
     Route: 048
  4. ORGOVYX [Suspect]
     Active Substance: RELUGOLIX
     Route: 048
  5. ORGOVYX [Suspect]
     Active Substance: RELUGOLIX
     Route: 048
  6. MAGNESIUM [Suspect]
     Active Substance: MAGNESIUM
     Indication: Constipation

REACTIONS (22)
  - Stent placement [Unknown]
  - Diabetes mellitus [Unknown]
  - Nephrostomy [Unknown]
  - Kidney infection [Unknown]
  - Renal impairment [Unknown]
  - Menopausal symptoms [Unknown]
  - Feeling cold [Unknown]
  - Dysuria [Unknown]
  - Penile dermatitis [Unknown]
  - Penile ulceration [Unknown]
  - Skin ulcer [Unknown]
  - Device leakage [Unknown]
  - Penis disorder [Recovered/Resolved]
  - Pruritus [Unknown]
  - Anorectal discomfort [Unknown]
  - Haemorrhoids [Unknown]
  - Rash [Unknown]
  - Hot flush [Not Recovered/Not Resolved]
  - Hyperhidrosis [Not Recovered/Not Resolved]
  - Weight increased [Unknown]
  - Constipation [Recovering/Resolving]
  - Musculoskeletal pain [Recovered/Resolved]

NARRATIVE: CASE EVENT DATE: 20240301
